FAERS Safety Report 4888624-9 (Version None)
Quarter: 2005Q4

REPORT INFORMATION
  Report Type: 
  Country: None (occurrence: None)
  Receive Date: 20051216
  Receipt Date: 20050823
  Transmission Date: 20060501
  Serious: No
  Sender: FDA-Public Use
  Company Number: USA0508106252

PATIENT
  Age: 55 Year
  Sex: Male

DRUGS (3)
  1. CIALIS [Suspect]
     Indication: ERECTILE DYSFUNCTION
     Dosage: 20 MG
     Dates: start: 20041201
  2. METFORMIN HCL [Concomitant]
  3. ACTOS (PIOGLIRAZONE HYDROCHLORIDE0 [Concomitant]

REACTIONS (2)
  - HANGOVER [None]
  - HEADACHE [None]
